FAERS Safety Report 18623384 (Version 1)
Quarter: 2020Q4

REPORT INFORMATION
  Report Type: Spontaneous
  Country: US (occurrence: US)
  Receive Date: 20201215
  Receipt Date: 20201215
  Transmission Date: 20210114
  Serious: Yes (Hospitalization, Disabling, Other)
  Sender: FDA-Public Use
  Company Number: None

PATIENT
  Age: 58 Year
  Sex: Female
  Weight: 94.8 kg

DRUGS (11)
  1. METFORMIN HCL [Concomitant]
     Active Substance: METFORMIN HYDROCHLORIDE
  2. METHOCARBAMOL. [Concomitant]
     Active Substance: METHOCARBAMOL
  3. AMITRIPTYLINE [Concomitant]
     Active Substance: AMITRIPTYLINE
  4. FAMOTIONE [Concomitant]
  5. FIBER THERAPHY [Concomitant]
  6. ZANTAC [Suspect]
     Active Substance: RANITIDINE HYDROCHLORIDE
     Indication: GASTRIC DISORDER
     Dosage: ?          QUANTITY:1 PILL;?
     Dates: start: 20150103, end: 20191214
  7. LISINOPRIL. [Concomitant]
     Active Substance: LISINOPRIL
  8. FENCFIBRATE MICRONIZED [Concomitant]
  9. ESTRADIOL. [Concomitant]
     Active Substance: ESTRADIOL
  10. IBUPROFEN. [Concomitant]
     Active Substance: IBUPROFEN
  11. STIMULANT LAXATIVE [Concomitant]
     Active Substance: BISACODYL

REACTIONS (1)
  - Tumour excision [None]

NARRATIVE: CASE EVENT DATE: 20150303
